FAERS Safety Report 14019479 (Version 1)
Quarter: 2017Q3

REPORT INFORMATION
  Report Type: Spontaneous
  Country: US (occurrence: US)
  Receive Date: 20170928
  Receipt Date: 20170928
  Transmission Date: 20171128
  Serious: Yes (Other)
  Sender: FDA-Public Use
  Company Number: US-SEPTODONT-201704238

PATIENT
  Age: 26 Year
  Sex: Female

DRUGS (1)
  1. XYLOCAINE 2% WITH EPINEPHRINE 1:100,000 INJECTION [Suspect]
     Active Substance: EPINEPHRINE BITARTRATE\LIDOCAINE HYDROCHLORIDE
     Indication: LOCAL ANAESTHESIA
     Dates: start: 20170809, end: 20170809

REACTIONS (2)
  - Off label use [Recovered/Resolved]
  - Haemorrhage [Recovered/Resolved]

NARRATIVE: CASE EVENT DATE: 20170809
